FAERS Safety Report 18550388 (Version 5)
Quarter: 2023Q1

REPORT INFORMATION
  Report Type: Spontaneous
  Country: US (occurrence: US)
  Receive Date: 20201126
  Receipt Date: 20230317
  Transmission Date: 20230418
  Serious: No
  Sender: FDA-Public Use
  Company Number: US-PFIZER INC-2020466053

PATIENT
  Age: 76 Year
  Sex: Female

DRUGS (2)
  1. IBRANCE [Suspect]
     Active Substance: PALBOCICLIB
     Indication: Breast cancer female
     Dosage: TAKE 1 TAB DAILY FOR 5 DAYS ON, 2 DAYS OFF AND REPEAT
     Route: 048
  2. IBRANCE [Suspect]
     Active Substance: PALBOCICLIB
     Dosage: 5 DAYS ON AND 2 DAYS OFF
     Dates: start: 20230106

REACTIONS (2)
  - White blood cell count decreased [Unknown]
  - Off label use [Unknown]
